FAERS Safety Report 10270198 (Version 1)
Quarter: 2014Q2

REPORT INFORMATION
  Report Type: Spontaneous
  Country: DE (occurrence: None)
  Receive Date: 20140625
  Receipt Date: 20140625
  Transmission Date: 20141212
  Serious: Yes (Death)
  Sender: FDA-Public Use
  Company Number: FK201402447

PATIENT
  Age: 62 Year
  Sex: Male

DRUGS (12)
  1. IRINOTECAN (IRINOTECAN) [Suspect]
     Indication: COLON CANCER METASTATIC
     Dosage: DAY 1.
  2. IRINOTECAN (IRINOTECAN) [Suspect]
     Indication: METASTASES TO BONE
     Dosage: DAY 1.
  3. IRINOTECAN (IRINOTECAN) [Suspect]
     Indication: METASTASES TO LUNG
     Dosage: DAY 1.
  4. LEUCOVORIN (CALCIUM FOLINATE) [Suspect]
     Indication: COLON CANCER METASTATIC
     Dosage: DAY 1.
  5. LEUCOVORIN (CALCIUM FOLINATE) [Suspect]
     Indication: METASTASES TO BONE
     Dosage: DAY 1.
  6. LEUCOVORIN (CALCIUM FOLINATE) [Suspect]
     Indication: METASTASES TO LUNG
     Dosage: DAY 1.
  7. FLUOROURACIL (FLUOROURACIL) [Suspect]
     Indication: COLON CANCER METASTATIC
     Dosage: 24 HRS ONTINUOUS.
  8. FLUOROURACIL (FLUOROURACIL) [Suspect]
     Indication: METASTASES TO BONE
     Dosage: 24 HRS ONTINUOUS.
  9. FLUOROURACIL (FLUOROURACIL) [Suspect]
     Indication: METASTASES TO LUNG
     Dosage: 24 HRS ONTINUOUS.
  10. BEVACIZUMAB (BEVACIZUMAB) [Suspect]
     Indication: COLON CANCER METASTATIC
     Dosage: DAY 1.
     Route: 042
  11. BEVACIZUMAB (BEVACIZUMAB) [Suspect]
     Indication: METASTASES TO BONE
     Dosage: DAY 1.
     Route: 042
  12. BEVACIZUMAB (BEVACIZUMAB) [Suspect]
     Indication: METASTASES TO LUNG
     Dosage: DAY 1.
     Route: 042

REACTIONS (7)
  - Tumour lysis syndrome [None]
  - Renal failure acute [None]
  - Diarrhoea [None]
  - Metastases to bone [None]
  - Metastases to lung [None]
  - General physical health deterioration [None]
  - Refusal of treatment by patient [None]
